FAERS Safety Report 11941439 (Version 1)
Quarter: 2016Q1

REPORT INFORMATION
  Report Type: Report from Study
  Country: DE (occurrence: DE)
  Receive Date: 20160122
  Receipt Date: 20160122
  Transmission Date: 20160526
  Serious: Yes (Hospitalization)
  Sender: FDA-Public Use
  Company Number: DE-BIOGEN-2015BI113692

PATIENT
  Age: 26 Year
  Sex: Female

DRUGS (1)
  1. TECFIDERA [Suspect]
     Active Substance: DIMETHYL FUMARATE
     Indication: MULTIPLE SCLEROSIS
     Route: 048
     Dates: start: 20141130

REACTIONS (5)
  - Pyometra [Recovered/Resolved with Sequelae]
  - Oophoritis [Recovered/Resolved with Sequelae]
  - Ovarian disorder [Recovered/Resolved with Sequelae]
  - Suture related complication [Recovered/Resolved]
  - Uterine scar [Recovered/Resolved with Sequelae]

NARRATIVE: CASE EVENT DATE: 20150802
